FAERS Safety Report 23626843 (Version 1)
Quarter: 2024Q1

REPORT INFORMATION
  Report Type: Spontaneous
  Country: US (occurrence: None)
  Receive Date: 20240312
  Receipt Date: 20240312
  Transmission Date: 20240410
  Serious: Yes (Hospitalization)
  Sender: FDA-Public Use
  Company Number: None

PATIENT
  Age: 68 Year
  Sex: Male
  Weight: 69.75 kg

DRUGS (1)
  1. OXALIPLATIN [Suspect]
     Active Substance: OXALIPLATIN
     Indication: Oesophageal carcinoma
     Dosage: OTHER FREQUENCY : Q2WEEKS;?
     Route: 041
     Dates: start: 20230927, end: 20240304

REACTIONS (6)
  - Abdominal pain upper [None]
  - Hyperhidrosis [None]
  - Infusion related reaction [None]
  - Oxygen saturation decreased [None]
  - Blood pressure decreased [None]
  - Heart rate increased [None]

NARRATIVE: CASE EVENT DATE: 20240304
